FAERS Safety Report 25494930 (Version 1)
Quarter: 2025Q2

REPORT INFORMATION
  Report Type: Spontaneous
  Country: US (occurrence: None)
  Receive Date: 20250630
  Receipt Date: 20250630
  Transmission Date: 20250716
  Serious: Yes (Other)
  Sender: FDA-CTU
  Company Number: None

PATIENT
  Sex: Male

DRUGS (5)
  1. RETEVMO [Suspect]
     Active Substance: SELPERCATINIB
     Indication: Thyroid cancer
     Dates: start: 20241002
  2. CETIRIZINE HCL [Concomitant]
     Active Substance: CETIRIZINE HYDROCHLORIDE
  3. MULTIVITAMIN TAB [Concomitant]
  4. RETEVMO [Concomitant]
     Active Substance: SELPERCATINIB
  5. RETEVMO TAB 160MG [Concomitant]

REACTIONS (2)
  - Surgery [None]
  - Therapy interrupted [None]
